FAERS Safety Report 17186418 (Version 1)
Quarter: 2019Q4

REPORT INFORMATION
  Report Type: Report from Study
  Country: None (occurrence: CO)
  Receive Date: 20191220
  Receipt Date: 20191220
  Transmission Date: 20200122
  Serious: Yes (Hospitalization, Other)
  Sender: FDA-Public Use
  Company Number: CO-ABBVIE-17K-036-3061549-00

PATIENT
  Age: 85 Year
  Sex: Female
  Weight: 50 kg

DRUGS (1)
  1. IMBRUVICA [Suspect]
     Active Substance: IBRUTINIB
     Indication: B-CELL SMALL LYMPHOCYTIC LYMPHOMA
     Route: 048
     Dates: start: 20161001

REACTIONS (8)
  - Malaise [Recovering/Resolving]
  - Pneumonia [Not Recovered/Not Resolved]
  - Back pain [Recovering/Resolving]
  - Depression [Unknown]
  - Decreased appetite [Recovering/Resolving]
  - Weight decreased [Unknown]
  - Chest pain [Recovering/Resolving]
  - Immunoglobulins abnormal [Recovering/Resolving]

NARRATIVE: CASE EVENT DATE: 20170104
